FAERS Safety Report 20338088 (Version 1)
Quarter: 2022Q1

REPORT INFORMATION
  Report Type: Spontaneous
  Country: US (occurrence: US)
  Receive Date: 20220115
  Receipt Date: 20220115
  Transmission Date: 20220423
  Serious: Yes (Other)
  Sender: FDA-Public Use
  Company Number: US-drreddys-LIT/USA/22/0145922

PATIENT
  Age: 3 Year
  Sex: Male

DRUGS (28)
  1. SIROLIMUS [Suspect]
     Active Substance: SIROLIMUS
     Indication: Anaphylactic transfusion reaction
  2. SIROLIMUS [Suspect]
     Active Substance: SIROLIMUS
     Indication: Cytomegalovirus infection
  3. SIROLIMUS [Suspect]
     Active Substance: SIROLIMUS
     Indication: Autologous haematopoietic stem cell transplant
  4. SIROLIMUS [Suspect]
     Active Substance: SIROLIMUS
     Indication: Delayed haemolytic transfusion reaction
  5. THIOTEPA [Suspect]
     Active Substance: THIOTEPA
     Indication: Anaphylactic transfusion reaction
     Dosage: DAY -7
  6. THIOTEPA [Suspect]
     Active Substance: THIOTEPA
     Indication: Cytomegalovirus infection
  7. THIOTEPA [Suspect]
     Active Substance: THIOTEPA
     Indication: Autologous haematopoietic stem cell transplant
  8. THIOTEPA [Suspect]
     Active Substance: THIOTEPA
     Indication: Delayed haemolytic transfusion reaction
  9. HYDROXYUREA [Suspect]
     Active Substance: HYDROXYUREA
     Indication: Anaphylactic transfusion reaction
     Dosage: DAY -70 TO -10
  10. HYDROXYUREA [Suspect]
     Active Substance: HYDROXYUREA
     Indication: Cytomegalovirus infection
  11. HYDROXYUREA [Suspect]
     Active Substance: HYDROXYUREA
     Indication: Autologous haematopoietic stem cell transplant
  12. HYDROXYUREA [Suspect]
     Active Substance: HYDROXYUREA
     Indication: Delayed haemolytic transfusion reaction
  13. THYMOGLOBULIN [Suspect]
     Active Substance: LAPINE T-LYMPHOCYTE IMMUNE GLOBULIN
     Indication: Anaphylactic transfusion reaction
     Dosage: DAYS -9 TO -7
  14. THYMOGLOBULIN [Suspect]
     Active Substance: LAPINE T-LYMPHOCYTE IMMUNE GLOBULIN
     Indication: Cytomegalovirus infection
  15. THYMOGLOBULIN [Suspect]
     Active Substance: LAPINE T-LYMPHOCYTE IMMUNE GLOBULIN
     Indication: Autologous haematopoietic stem cell transplant
  16. THYMOGLOBULIN [Suspect]
     Active Substance: LAPINE T-LYMPHOCYTE IMMUNE GLOBULIN
     Indication: Delayed haemolytic transfusion reaction
  17. FLUDARABINE [Suspect]
     Active Substance: FLUDARABINE PHOSPHATE
     Indication: Anaphylactic transfusion reaction
     Dosage: DAYS -6 TO -2
  18. FLUDARABINE [Suspect]
     Active Substance: FLUDARABINE PHOSPHATE
     Indication: Cytomegalovirus infection
  19. FLUDARABINE [Suspect]
     Active Substance: FLUDARABINE PHOSPHATE
     Indication: Autologous haematopoietic stem cell transplant
  20. FLUDARABINE [Suspect]
     Active Substance: FLUDARABINE PHOSPHATE
     Indication: Delayed haemolytic transfusion reaction
  21. CYCLOPHOSPHAMIDE [Suspect]
     Active Substance: CYCLOPHOSPHAMIDE
     Indication: Anaphylactic transfusion reaction
     Dosage: DAYS -6 AND -5
  22. CYCLOPHOSPHAMIDE [Suspect]
     Active Substance: CYCLOPHOSPHAMIDE
     Indication: Cytomegalovirus infection
     Dosage: DAY PLUS 3 AND PLUS 4
  23. CYCLOPHOSPHAMIDE [Suspect]
     Active Substance: CYCLOPHOSPHAMIDE
     Indication: Autologous haematopoietic stem cell transplant
  24. CYCLOPHOSPHAMIDE [Suspect]
     Active Substance: CYCLOPHOSPHAMIDE
     Indication: Delayed haemolytic transfusion reaction
  25. MYCOPHENOLATE MOFETIL [Suspect]
     Active Substance: MYCOPHENOLATE MOFETIL
     Indication: Anaphylactic transfusion reaction
     Dosage: ON DAY PLUS 5 AFTER TRANSPLANT
  26. MYCOPHENOLATE MOFETIL [Suspect]
     Active Substance: MYCOPHENOLATE MOFETIL
     Indication: Cytomegalovirus infection
  27. MYCOPHENOLATE MOFETIL [Suspect]
     Active Substance: MYCOPHENOLATE MOFETIL
     Indication: Autologous haematopoietic stem cell transplant
  28. MYCOPHENOLATE MOFETIL [Suspect]
     Active Substance: MYCOPHENOLATE MOFETIL
     Indication: Delayed haemolytic transfusion reaction

REACTIONS (4)
  - Transplant failure [Unknown]
  - Parainfluenzae virus infection [Unknown]
  - Drug ineffective [Unknown]
  - Underdose [Unknown]
